FAERS Safety Report 26191030 (Version 1)
Quarter: 2025Q4

REPORT INFORMATION
  Report Type: Spontaneous
  Country: EU (occurrence: EU)
  Receive Date: 20251223
  Receipt Date: 20251223
  Transmission Date: 20260118
  Serious: Yes (Other)
  Sender: SANOFI AVENTIS
  Company Number: EU-EMA-DD-20251203-7482675-080828

PATIENT
  Age: 42 Year
  Sex: Female

DRUGS (6)
  1. DOCETAXEL [Suspect]
     Active Substance: DOCETAXEL
     Indication: HER2 positive breast cancer
     Dosage: UNK
     Dates: start: 201506
  2. DOCETAXEL [Suspect]
     Active Substance: DOCETAXEL
     Dosage: UNK, QW
     Dates: start: 201503, end: 201606
  3. TRASTUZUMAB [Suspect]
     Active Substance: TRASTUZUMAB
     Indication: HER2 positive breast cancer
     Dosage: UNK
     Dates: start: 201503
  4. TRASTUZUMAB [Suspect]
     Active Substance: TRASTUZUMAB
     Dosage: UNK
     Dates: start: 201506, end: 201901
  5. PERTUZUMAB [Suspect]
     Active Substance: PERTUZUMAB
     Indication: HER2 positive breast cancer
     Dosage: UNK
     Dates: start: 201503, end: 201901
  6. GOSERELIN [Concomitant]
     Active Substance: GOSERELIN
     Indication: Ovarian dysfunction
     Dosage: UNK

REACTIONS (3)
  - Breast cancer [Recovering/Resolving]
  - Metastases to bone [Recovering/Resolving]
  - Malignant neoplasm progression [Unknown]

NARRATIVE: CASE EVENT DATE: 20190101
